FAERS Safety Report 10332797 (Version 2)
Quarter: 2014Q1

REPORT INFORMATION
  Report Type: Spontaneous
  Country: US (occurrence: None)
  Receive Date: 20120817
  Receipt Date: 20130815
  Transmission Date: 20141002
  Serious: Yes (Other)
  Sender: FDA-Public Use
  Company Number: ADR-2012-00680

PATIENT
  Sex: Female

DRUGS (4)
  1. BACLOFEN INTRATHECAL [Suspect]
     Indication: COMPLEX REGIONAL PAIN SYNDROME
  2. BACLOFEN INTRATHECAL [Suspect]
     Indication: COMPLEX REGIONAL PAIN SYNDROME
  3. BACLOFEN INTRATHECAL [Suspect]
     Indication: PAIN
  4. DILAUDID (HYDROMORPHONE) INTRATHECAL [Concomitant]

REACTIONS (3)
  - No therapeutic response [None]
  - Drug withdrawal syndrome [None]
  - Infusion site mass [None]
